FAERS Safety Report 18520479 (Version 3)
Quarter: 2020Q4

REPORT INFORMATION
  Report Type: Spontaneous
  Country: JP (occurrence: JP)
  Receive Date: 20201118
  Receipt Date: 20201218
  Transmission Date: 20210114
  Serious: Yes (Other)
  Sender: FDA-Public Use
  Company Number: JP-ROCHE-2715738

PATIENT
  Age: 76 Year
  Sex: Male

DRUGS (3)
  1. LUCENTIS [Suspect]
     Active Substance: RANIBIZUMAB
     Indication: SEROUS RETINAL DETACHMENT
     Dosage: 3 TIMES
     Route: 031
  2. LUCENTIS [Suspect]
     Active Substance: RANIBIZUMAB
     Indication: DETACHMENT OF RETINAL PIGMENT EPITHELIUM
     Dosage: 3 TIMES
     Route: 031
     Dates: start: 202001
  3. LUCENTIS [Suspect]
     Active Substance: RANIBIZUMAB
     Dosage: 3 TIMES
     Route: 031

REACTIONS (6)
  - Off label use [Unknown]
  - Detachment of retinal pigment epithelium [Unknown]
  - Intentional product use issue [Unknown]
  - Serous retinal detachment [Unknown]
  - Visual acuity reduced [Unknown]
  - Disease recurrence [Unknown]

NARRATIVE: CASE EVENT DATE: 202010
